FAERS Safety Report 6654568-5 (Version None)
Quarter: 2010Q1

REPORT INFORMATION
  Report Type: 
  Country: None (occurrence: None)
  Receive Date: 20100326
  Receipt Date: 20100316
  Transmission Date: 20100710
  Serious: Yes (Death, Other)
  Sender: FDA-Public Use
  Company Number: US-PFIZER INC-2010034002

PATIENT
  Sex: Female

DRUGS (2)
  1. CHANTIX [Suspect]
     Indication: SMOKING CESSATION THERAPY
     Dosage: UNK MG, UNK
     Route: 048
     Dates: start: 20080101, end: 20090101
  2. XANAX [Concomitant]
     Indication: ANXIETY
     Dosage: 0.05 MG, 1X/DAY
     Route: 048

REACTIONS (5)
  - ANGER [None]
  - DEPRESSION [None]
  - LUNG NEOPLASM MALIGNANT [None]
  - RESTLESSNESS [None]
  - SUICIDAL IDEATION [None]
